FAERS Safety Report 10244570 (Version 1)
Quarter: 2014Q2

REPORT INFORMATION
  Report Type: Spontaneous
  Country: US (occurrence: US)
  Receive Date: 20140618
  Receipt Date: 20140618
  Transmission Date: 20141212
  Serious: Yes (Hospitalization)
  Sender: FDA-Public Use
  Company Number: US-GLAXOSMITHKLINE-A1071768A

PATIENT
  Sex: Male

DRUGS (14)
  1. VOTRIENT [Suspect]
     Indication: METASTATIC RENAL CELL CARCINOMA
     Dosage: 800MG PER DAY
     Route: 048
     Dates: start: 20140125
  2. ALBUTEROL SULFATE [Suspect]
     Indication: PRODUCT USED FOR UNKNOWN INDICATION
     Dosage: 90MCG AS REQUIRED
     Route: 055
  3. FLONASE [Suspect]
     Indication: PRODUCT USED FOR UNKNOWN INDICATION
     Dosage: 1SPR PER DAY
     Route: 045
  4. BENADRYL [Concomitant]
  5. COLCHICINE [Concomitant]
  6. DIOVAN [Concomitant]
  7. IMODIUM [Concomitant]
  8. LEVEMIR [Concomitant]
  9. OMEPRAZOLE [Concomitant]
  10. OXYGEN [Concomitant]
  11. SOTALOL HYDROCHLORIDE [Concomitant]
  12. TAMSULOSIN HYDROCHLORIDE [Concomitant]
  13. VYTORIN [Concomitant]
  14. WARFARIN [Concomitant]

REACTIONS (6)
  - Cerebrovascular accident [Unknown]
  - Pneumonia [Recovering/Resolving]
  - Dyspnoea [Recovering/Resolving]
  - Fall [Unknown]
  - Musculoskeletal chest pain [Unknown]
  - Constipation [Unknown]
